FAERS Safety Report 7432561-2 (Version None)
Quarter: 2011Q2

REPORT INFORMATION
  Report Type: 
  Country: None (occurrence: None)
  Receive Date: 20110422
  Receipt Date: 20110408
  Transmission Date: 20111010
  Serious: No
  Sender: FDA-Public Use
  Company Number: B0704655A

PATIENT
  Sex: Female

DRUGS (2)
  1. RELENZA [Suspect]
     Indication: INFLUENZA
     Dosage: 20MG PER DAY
     Route: 055
     Dates: start: 20110302
  2. CALONAL [Concomitant]
     Route: 048
     Dates: start: 20110302

REACTIONS (2)
  - DIARRHOEA [None]
  - OVERDOSE [None]
